FAERS Safety Report 6766083-9 (Version None)
Quarter: 2010Q2

REPORT INFORMATION
  Report Type: 
  Country: None (occurrence: None)
  Receive Date: 20100611
  Receipt Date: 20100610
  Transmission Date: 20101027
  Serious: Yes (Other)
  Sender: FDA-Public Use
  Company Number: D0067902A

PATIENT
  Sex: Female
  Weight: 85 kg

DRUGS (2)
  1. LAMICTAL [Suspect]
     Route: 048
  2. VALPROIC ACID [Suspect]
     Route: 048

REACTIONS (3)
  - DIZZINESS [None]
  - DRUG TOXICITY [None]
  - NYSTAGMUS [None]
